FAERS Safety Report 6710711-0 (Version None)
Quarter: 2010Q2

REPORT INFORMATION
  Report Type: 
  Country: None (occurrence: None)
  Receive Date: 20100504
  Receipt Date: 20100504
  Transmission Date: 20101027
  Serious: Yes (Hospitalization, Other)
  Sender: FDA-Public Use
  Company Number: None

PATIENT
  Age: 30 Month
  Sex: Female
  Weight: 12.7007 kg

DRUGS (4)
  1. CHILDREN'S MOTRIN [Suspect]
     Indication: CHILLS
     Dosage: 1 TSP 6 HOURS PO
     Route: 048
     Dates: start: 20100415, end: 20100416
  2. CHILDREN'S MOTRIN [Suspect]
     Indication: PYREXIA
     Dosage: 1 TSP 6 HOURS PO
     Route: 048
     Dates: start: 20100415, end: 20100416
  3. CHILDREN'S TYLENOL 160 MG PER 5 ML MCNEIL-PPC, INC [Suspect]
     Indication: CHILLS
     Dosage: 1 TSP 4 HOURS PO
     Route: 048
     Dates: start: 20100415, end: 20100416
  4. CHILDREN'S TYLENOL 160 MG PER 5 ML MCNEIL-PPC, INC [Suspect]
     Indication: PYREXIA
     Dosage: 1 TSP 4 HOURS PO
     Route: 048
     Dates: start: 20100415, end: 20100416

REACTIONS (5)
  - CHILLS [None]
  - CONVULSION [None]
  - LOSS OF CONSCIOUSNESS [None]
  - PYREXIA [None]
  - SOMNOLENCE [None]
